FAERS Safety Report 7105120-9 (Version None)
Quarter: 2010Q4

REPORT INFORMATION
  Report Type: 
  Country: None (occurrence: None)
  Receive Date: 20101116
  Receipt Date: 20101105
  Transmission Date: 20110411
  Serious: Yes (Other)
  Sender: FDA-Public Use
  Company Number: US-JNJFOC-20101103086

PATIENT
  Age: 64 Year
  Sex: Female

DRUGS (1)
  1. DOXIL [Suspect]
     Indication: OVARIAN EPITHELIAL CANCER RECURRENT
     Dosage: UNSPECIFIED DOSE EVERY 4-7 WEEKS FOR 9 YEARS;  CUMULATIVE DOSE 3670 MG/M2
     Route: 042

REACTIONS (2)
  - BREAST CANCER [None]
  - BREAST CANCER IN SITU [None]
